FAERS Safety Report 4974192-X (Version None)
Quarter: 2006Q2

REPORT INFORMATION
  Report Type: 
  Country: None (occurrence: None)
  Receive Date: 20060417
  Receipt Date: 20050218
  Transmission Date: 20061013
  Serious: Yes (Other)
  Sender: FDA-Public Use
  Company Number: US-MERCK-0502USA02953

PATIENT
  Age: 50 Year
  Sex: Female
  Weight: 67 kg

DRUGS (8)
  1. VIOXX [Suspect]
     Indication: OSTEOARTHRITIS
     Route: 048
     Dates: start: 20011101, end: 20040101
  2. ULTRAM [Concomitant]
     Route: 065
  3. HYDROCHLOROTHIAZIDE [Concomitant]
     Route: 065
  4. FLOVENT [Concomitant]
     Route: 065
  5. COMBIVENT [Concomitant]
     Route: 065
  6. PROTONIX [Concomitant]
     Route: 065
  7. LESCOL [Concomitant]
     Route: 065
  8. ATENOLOL [Concomitant]
     Route: 065

REACTIONS (5)
  - APPENDICITIS [None]
  - CAROTID ARTERY OCCLUSION [None]
  - CEREBROVASCULAR ACCIDENT [None]
  - DIZZINESS [None]
  - TRANSIENT ISCHAEMIC ATTACK [None]
